FAERS Safety Report 5393388-9 (Version None)
Quarter: 2007Q3

REPORT INFORMATION
  Report Type: 
  Country: None (occurrence: None)
  Receive Date: 20070718
  Receipt Date: 20070718
  Transmission Date: 20080115
  Serious: No
  Sender: FDA-Public Use
  Company Number: None

PATIENT
  Age: 17 Year
  Sex: Female

DRUGS (1)
  1. IMPLANON [Suspect]
     Indication: CONTRACEPTION
     Dosage: 68 MG SQ
     Route: 058
     Dates: start: 20070129, end: 20070717

REACTIONS (2)
  - DEVICE BREAKAGE [None]
  - PHARMACEUTICAL PRODUCT COMPLAINT [None]
